FAERS Safety Report 15607518 (Version 1)
Quarter: 2018Q4

REPORT INFORMATION
  Report Type: Spontaneous
  Country: KR (occurrence: KR)
  Receive Date: 20181112
  Receipt Date: 20181112
  Transmission Date: 20190205
  Serious: Yes (Death, Other)
  Sender: FDA-Public Use
  Company Number: KR-CORDEN PHARMA LATINA S.P.A.-KR-2018COR000132

PATIENT

DRUGS (3)
  1. ETOPOSIDE. [Suspect]
     Active Substance: ETOPOSIDE
     Indication: LYMPHOMA
     Dosage: UNK
     Route: 065
  2. NIMUSTINE HCL [Suspect]
     Active Substance: NIMUSTINE HYDROCHLORIDE
     Indication: LYMPHOMA
     Dosage: UNK
     Route: 065
  3. CYCLOPHOSPHAMIDE. [Suspect]
     Active Substance: CYCLOPHOSPHAMIDE
     Indication: LYMPHOMA
     Dosage: UNK
     Route: 065

REACTIONS (1)
  - Venoocclusive disease [Fatal]
